FAERS Safety Report 8557634-2 (Version None)
Quarter: 2012Q3

REPORT INFORMATION
  Report Type: 
  Country: None (occurrence: None)
  Receive Date: 20120801
  Receipt Date: 20120723
  Transmission Date: 20120928
  Serious: Yes (Other)
  Sender: FDA-Public Use
  Company Number: CA-ROCHE-1092553

PATIENT
  Sex: Female
  Weight: 59.928 kg

DRUGS (6)
  1. PREMARIN [Concomitant]
  2. VESICARE [Concomitant]
  3. ACTEMRA [Suspect]
     Indication: RHEUMATOID ARTHRITIS
     Route: 042
     Dates: start: 20120305, end: 20120529
  4. GELNIQUE [Concomitant]
  5. CELEBREX [Concomitant]
  6. NEXIUM [Concomitant]

REACTIONS (2)
  - BONE DISORDER [None]
  - LOCALISED INFECTION [None]
